FAERS Safety Report 14755640 (Version 3)
Quarter: 2018Q2

REPORT INFORMATION
  Report Type: Spontaneous
  Country: US (occurrence: US)
  Receive Date: 20180413
  Receipt Date: 20180608
  Transmission Date: 20180711
  Serious: No
  Sender: FDA-Public Use
  Company Number: US-ASTRAZENECA-2018SE47378

PATIENT
  Age: 26413 Day
  Sex: Female
  Weight: 59 kg

DRUGS (4)
  1. GLYBURIDE METFORMIN [Concomitant]
     Dosage: 5-500MG TWICE A DAY
  2. BRILINTA [Suspect]
     Active Substance: TICAGRELOR
     Indication: STENT PLACEMENT
     Route: 048
     Dates: start: 20180406
  3. PREDNISONE. [Concomitant]
     Active Substance: PREDNISONE
  4. GLYBURIDE METFORMIN [Concomitant]
     Dosage: 5-500MG ONCE A DAY STARTED 10-12 YEARS AGO

REACTIONS (5)
  - Chromaturia [Unknown]
  - Cough [Unknown]
  - Blood glucose increased [Unknown]
  - Contusion [Unknown]
  - Dizziness [Unknown]

NARRATIVE: CASE EVENT DATE: 20180407
